FAERS Safety Report 19191695 (Version 2)
Quarter: 2021Q4

REPORT INFORMATION
  Report Type: Spontaneous
  Country: IT (occurrence: IT)
  Receive Date: 20210429
  Receipt Date: 20211028
  Transmission Date: 20220303
  Serious: Yes (Other)
  Sender: FDA-Public Use
  Company Number: IT-SUN PHARMACEUTICAL INDUSTRIES LTD-2021RR-293656

PATIENT
  Age: 11 Year
  Sex: Male

DRUGS (14)
  1. TEMOZOLOMIDE [Suspect]
     Active Substance: TEMOZOLOMIDE
     Indication: Medulloblastoma
     Dosage: 180 MILLIGRAM/SQ. METER, 5 DAYS EVERY 23 DAYS
     Route: 065
  2. METHOTREXATE [Suspect]
     Active Substance: METHOTREXATE
     Dosage: 8 G/M^2 ON DAY 1
     Route: 042
  3. METHOTREXATE [Suspect]
     Active Substance: METHOTREXATE
     Indication: Medulloblastoma
     Dosage: 12 MILLIGRAM, AT EVERY CYCLE
     Route: 037
  4. VINCRISTINE [Suspect]
     Active Substance: VINCRISTINE
     Indication: Medulloblastoma
     Dosage: 1.5 G/M^2 ON DAY 1
     Route: 042
  5. VINCRISTINE [Suspect]
     Active Substance: VINCRISTINE
     Indication: Medulloblastoma
     Dosage: 1.5 G/M^2 ON DAY 8
     Route: 065
  6. CARBOPLATIN [Suspect]
     Active Substance: CARBOPLATIN
     Indication: Medulloblastoma
     Dosage: 600 MILLIGRAM/SQ. METER, ON DAY 8
     Route: 065
  7. CARBOPLATIN [Suspect]
     Active Substance: CARBOPLATIN
     Indication: Medulloblastoma
     Dosage: 600 MILLIGRAM/SQ. METER
     Route: 065
  8. ETOPOSIDE [Suspect]
     Active Substance: ETOPOSIDE
     Indication: Medulloblastoma
     Dosage: 200 MILLIGRAM/SQ. METER, ON DAYS 2, 3 AND 4
     Route: 065
  9. ETOPOSIDE [Suspect]
     Active Substance: ETOPOSIDE
     Dosage: 150 MILLIGRAM/SQ. METER, ON DAYS 8 AND 9
     Route: 065
  10. ETOPOSIDE [Suspect]
     Active Substance: ETOPOSIDE
     Dosage: 25 MILLIGRAM/SQ. METER, DAILY, 5 DAYS A WEEK
     Route: 048
  11. ETOPOSIDE [Suspect]
     Active Substance: ETOPOSIDE
     Dosage: 500 MILLIGRAM/SQ. METER ON DAYS -5, -4 AND -3
     Route: 048
  12. CYCLOPHOSPHAMIDE [Suspect]
     Active Substance: CYCLOPHOSPHAMIDE
     Indication: Medulloblastoma
     Dosage: 4 G/M^2 ON DAY 1
     Route: 065
  13. CYCLOPHOSPHAMIDE [Suspect]
     Active Substance: CYCLOPHOSPHAMIDE
     Indication: Medulloblastoma
     Route: 065
  14. THIOTEPA [Suspect]
     Active Substance: THIOTEPA
     Indication: Medulloblastoma
     Dosage: 300 MILLIGRAM/SQ. METER, ON DAYS -5, -4 AND -3
     Route: 065

REACTIONS (3)
  - Febrile neutropenia [Recovered/Resolved]
  - Disease recurrence [Recovered/Resolved]
  - Therapeutic product effect incomplete [Recovered/Resolved]
